FAERS Safety Report 25791526 (Version 2)
Quarter: 2025Q4

REPORT INFORMATION
  Report Type: Spontaneous
  Country: EU (occurrence: EU)
  Receive Date: 20250911
  Receipt Date: 20251208
  Transmission Date: 20260117
  Serious: Yes (Other)
  Sender: TORRENT PHARMA INC.
  Company Number: EU-TORRENT-00027484

PATIENT
  Age: 37 Year
  Sex: Female

DRUGS (2)
  1. PREGABALIN [Suspect]
     Active Substance: PREGABALIN
     Indication: Bipolar II disorder
     Dosage: 50 MG/D QD (LOW DOSE)
     Route: 048
  2. QUETIAPINE [Concomitant]
     Active Substance: QUETIAPINE
     Indication: Product used for unknown indication
     Dosage: MONOTHERAPY WITH 150MG QUETIAPINE RET. (EXTENDED RELEASE) SIX MONTHS
     Route: 048

REACTIONS (10)
  - Depressive symptom [Recovered/Resolved]
  - Crying [Recovering/Resolving]
  - Feeling of despair [Recovering/Resolving]
  - Suicidal ideation [Recovered/Resolved]
  - Self-injurious ideation [Recovering/Resolving]
  - Condition aggravated [Recovering/Resolving]
  - Intentional self-injury [Recovering/Resolving]
  - Drug ineffective for unapproved indication [Unknown]
  - Self-destructive behaviour [Recovered/Resolved]
  - Off label use [Unknown]
